FAERS Safety Report 10607572 (Version 1)
Quarter: 2014Q4

REPORT INFORMATION
  Report Type: Spontaneous
  Country: US (occurrence: None)
  Receive Date: 20141124
  Receipt Date: 20141124
  Transmission Date: 20150529
  Serious: Yes (Life-Threatening)
  Sender: FDA-Public Use
  Company Number: None

PATIENT
  Age: 39 Year
  Sex: Female
  Weight: 85 kg

DRUGS (6)
  1. HUMULIN R [Concomitant]
     Active Substance: INSULIN HUMAN
  2. FAMOTIDINE. [Concomitant]
     Active Substance: FAMOTIDINE
  3. CETACAINE ANESTHETIC [Suspect]
     Active Substance: BENZOCAINE\BUTAMBEN\TETRACAINE HYDROCHLORIDE
     Indication: ANAESTHESIA
     Dosage: 1 TO 2 SPRAYS?ONCE?TOPICAL?ONCE (5 MIN)
     Route: 061
  4. FLUCONAZOLE. [Concomitant]
     Active Substance: FLUCONAZOLE
  5. VALSARTAN. [Concomitant]
     Active Substance: VALSARTAN
  6. AMLODIPINE [Concomitant]
     Active Substance: AMLODIPINE BESYLATE

REACTIONS (2)
  - Hypoxia [None]
  - Cyanosis [None]

NARRATIVE: CASE EVENT DATE: 20141104
